FAERS Safety Report 25841126 (Version 1)
Quarter: 2025Q3

REPORT INFORMATION
  Report Type: Report from Study
  Country: CA (occurrence: CA)
  Receive Date: 20250924
  Receipt Date: 20250924
  Transmission Date: 20251020
  Serious: Yes (Other)
  Sender: NOVARTIS
  Company Number: CA-002147023-NVSC2025CA116096

PATIENT
  Age: 55 Year
  Sex: Female

DRUGS (1)
  1. KISQALI [Interacting]
     Active Substance: RIBOCICLIB SUCCINATE
     Indication: Breast cancer metastatic
     Dosage: 600 MG, QD
     Route: 048
     Dates: start: 20250623, end: 202507

REACTIONS (5)
  - Adrenal gland cancer [Unknown]
  - Haemoglobin decreased [Unknown]
  - Hepatic enzyme increased [Unknown]
  - Drug effect less than expected [Unknown]
  - Drug interaction [Unknown]
